FAERS Safety Report 6759198-2 (Version None)
Quarter: 2010Q2

REPORT INFORMATION
  Report Type: 
  Country: None (occurrence: None)
  Receive Date: 20100607
  Receipt Date: 20100526
  Transmission Date: 20101027
  Serious: Yes (Death, Hospitalization, Other)
  Sender: FDA-Public Use
  Company Number: US-PFIZER INC-2009292239

PATIENT
  Sex: Male
  Weight: 63.5 kg

DRUGS (2)
  1. SUTENT [Suspect]
     Indication: RENAL CELL CARCINOMA
     Dosage: 50 MG, 1X/DAY
     Route: 048
     Dates: start: 20091020, end: 20100301
  2. METOPROLOL [Concomitant]
     Indication: HYPERTENSION
     Dosage: 10 MG, 1X/DAY
     Route: 048

REACTIONS (7)
  - DELUSION [None]
  - DISEASE PROGRESSION [None]
  - EPISTAXIS [None]
  - LOSS OF CONSCIOUSNESS [None]
  - RENAL CELL CARCINOMA [None]
  - SYNCOPE [None]
  - THROMBOCYTOPENIA [None]
